FAERS Safety Report 5279665-0 (Version None)
Quarter: 2007Q1

REPORT INFORMATION
  Report Type: 
  Country: None (occurrence: None)
  Receive Date: 20070323
  Receipt Date: 20070316
  Transmission Date: 20070707
  Serious: Yes (Other)
  Sender: FDA-Public Use
  Company Number: OSCN-PR-0703S-0123

PATIENT
  Sex: Female

DRUGS (1)
  1. OMNISCAN [Suspect]
     Dosage: SINGLE DOSE, I.V.
     Route: 042

REACTIONS (1)
  - NEPHROGENIC FIBROSING DERMOPATHY [None]
